FAERS Safety Report 22352248 (Version 2)
Quarter: 2023Q2

REPORT INFORMATION
  Report Type: Report from Study
  Country: US (occurrence: US)
  Receive Date: 20230522
  Receipt Date: 20230524
  Transmission Date: 20230722
  Serious: No
  Sender: FDA-Public Use
  Company Number: US-002147023-NVSC2023US115781

PATIENT
  Sex: Female
  Weight: 58.96 kg

DRUGS (12)
  1. COSENTYX [Suspect]
     Active Substance: SECUKINUMAB
     Indication: Psoriasis
     Dosage: UNK
     Route: 065
  2. METHOTREXATE [Suspect]
     Active Substance: METHOTREXATE
     Indication: Psoriasis
     Dosage: UNK
     Route: 065
  3. BETAMETHASONE DIPROPIONATE [Suspect]
     Active Substance: BETAMETHASONE DIPROPIONATE
     Indication: Psoriasis
     Dosage: 0.05 %
     Route: 061
  4. BETAMETHASONE DIPROPIONATE [Suspect]
     Active Substance: BETAMETHASONE DIPROPIONATE
     Indication: Psoriasis
     Dosage: 0.05 % (LOTION)
     Route: 061
  5. LATANOPROST [Suspect]
     Active Substance: LATANOPROST
     Indication: Psoriasis
     Dosage: 0.005 % (DROPS)
     Route: 065
  6. FOLIC ACID [Suspect]
     Active Substance: FOLIC ACID
     Indication: Psoriasis
     Dosage: 1 MG
     Route: 065
  7. CALCIPOTRIENE AND BETAMETHASONE DIPROPIONATE [Suspect]
     Active Substance: BETAMETHASONE DIPROPIONATE\CALCIPOTRIENE
     Indication: Psoriasis
     Dosage: UNK
     Route: 061
  8. AMLODIPINE [Suspect]
     Active Substance: AMLODIPINE BESYLATE
     Indication: Psoriasis
     Dosage: 10 MG
     Route: 065
  9. ASPIRIN [Suspect]
     Active Substance: ASPIRIN
     Indication: Psoriasis
     Dosage: 81 MG
     Route: 065
  10. LISINOPRIL [Suspect]
     Active Substance: LISINOPRIL
     Indication: Psoriasis
     Dosage: 40 MG
     Route: 048
  11. PRAVASTATIN [Suspect]
     Active Substance: PRAVASTATIN
     Indication: Psoriasis
     Dosage: 10 MG
     Route: 065
  12. VITAMIN D3 [Suspect]
     Active Substance: CHOLECALCIFEROL
     Indication: Psoriasis
     Dosage: 25 UG (?G (MICROGRAM))
     Route: 048

REACTIONS (14)
  - Palpitations [Unknown]
  - Peripheral swelling [Unknown]
  - Stress [Unknown]
  - Nausea [Unknown]
  - Arthralgia [Unknown]
  - Diarrhoea [Unknown]
  - Psoriasis [Not Recovered/Not Resolved]
  - Skin plaque [Not Recovered/Not Resolved]
  - Pruritus [Not Recovered/Not Resolved]
  - Skin exfoliation [Unknown]
  - Papule [Unknown]
  - Erythema [Unknown]
  - Product use in unapproved indication [Unknown]
  - Drug ineffective [Unknown]
